FAERS Safety Report 6972551-7 (Version None)
Quarter: 2010Q3

REPORT INFORMATION
  Report Type: 
  Country: None (occurrence: None)
  Receive Date: 20100909
  Receipt Date: 20100907
  Transmission Date: 20110219
  Serious: Yes (Death, Hospitalization, Other)
  Sender: FDA-Public Use
  Company Number: JP-BAYER-201012341BYL

PATIENT
  Age: 79 Year
  Sex: Male

DRUGS (16)
  1. NEXAVAR [Suspect]
     Indication: HEPATIC NEOPLASM MALIGNANT
     Dosage: UNIT DOSE: 200 MG
     Route: 048
     Dates: start: 20100406, end: 20100419
  2. NEXAVAR [Suspect]
     Dosage: UNIT DOSE: 200 MG
     Route: 048
     Dates: start: 20100420, end: 20100426
  3. NEXAVAR [Suspect]
     Dosage: UNIT DOSE: 200 MG
     Route: 048
     Dates: start: 20100430, end: 20100511
  4. DOXAZOSIN MESYLATE [Concomitant]
     Indication: HYPERTENSION
     Route: 048
     Dates: start: 20100420
  5. DOXAZOSIN MESYLATE [Concomitant]
     Route: 048
     Dates: end: 20100419
  6. CONIEL [Concomitant]
     Indication: HYPERTENSION
     Route: 048
     Dates: end: 20100409
  7. ZYRTEC [Concomitant]
     Route: 048
  8. OMEPRAL [Concomitant]
     Route: 048
  9. URIEF [Concomitant]
     Route: 048
  10. SHOUSAIKOTOU [Concomitant]
     Route: 048
     Dates: end: 20100511
  11. NORVASC [Concomitant]
     Indication: HYPERTENSION
     Route: 048
     Dates: start: 20100410
  12. NORVASC [Concomitant]
     Route: 048
     Dates: start: 20100330, end: 20100409
  13. BLOPRESS [Concomitant]
     Indication: HYPERTENSION
     Route: 048
     Dates: start: 20100401, end: 20100405
  14. BLOPRESS [Concomitant]
     Route: 048
     Dates: start: 20100406, end: 20100408
  15. BLOPRESS [Concomitant]
     Route: 048
     Dates: start: 20100406
  16. KERATINAMIN [Concomitant]
     Route: 061
     Dates: start: 20100405

REACTIONS (7)
  - ACUTE HEPATIC FAILURE [None]
  - ALANINE AMINOTRANSFERASE INCREASED [None]
  - ASPARTATE AMINOTRANSFERASE INCREASED [None]
  - BLOOD BILIRUBIN INCREASED [None]
  - HYPERTENSION [None]
  - PALMAR-PLANTAR ERYTHRODYSAESTHESIA SYNDROME [None]
  - PYREXIA [None]
